FAERS Safety Report 8116047-8 (Version None)
Quarter: 2012Q1

REPORT INFORMATION
  Report Type: 
  Country: None (occurrence: None)
  Receive Date: 20120206
  Receipt Date: 20120202
  Transmission Date: 20120608
  Serious: No
  Sender: FDA-Public Use
  Company Number: US-TEVA-319559USA

PATIENT
  Sex: Female
  Weight: 60.836 kg

DRUGS (2)
  1. PLAN B ONE-STEP [Suspect]
     Indication: MENSTRUATION IRREGULAR
     Dosage: 1.5 MILLIGRAM;
     Route: 048
     Dates: start: 20120112, end: 20120112
  2. CELEXA [Concomitant]
     Indication: ANXIETY

REACTIONS (2)
  - MENSTRUATION IRREGULAR [None]
  - DYSMENORRHOEA [None]
